FAERS Safety Report 5045481-8 (Version None)
Quarter: 2006Q2

REPORT INFORMATION
  Report Type: 
  Country: None (occurrence: None)
  Receive Date: 20060601
  Receipt Date: 20060410
  Transmission Date: 20061013
  Serious: No
  Sender: FDA-Public Use
  Company Number: 2006-BP-03044BP

PATIENT
  Age: 82 Year
  Sex: Female

DRUGS (6)
  1. SPIRIVA [Suspect]
     Indication: CHRONIC OBSTRUCTIVE PULMONARY DISEASE
     Dosage: 18 MCG (18 MCG, 1 CAP QD), IH
     Route: 055
     Dates: start: 20060224, end: 20060306
  2. SPIRIVA [Suspect]
     Indication: DISEASE PROGRESSION
     Dosage: 18 MCG (18 MCG, 1 CAP QD), IH
     Route: 055
     Dates: start: 20060224, end: 20060306
  3. PULMICORT [Concomitant]
  4. FORADIL [Concomitant]
  5. PREVACID [Concomitant]
  6. ATENOLOL [Concomitant]

REACTIONS (8)
  - CONSTIPATION [None]
  - DRY MOUTH [None]
  - DYSPNOEA [None]
  - GASTROOESOPHAGEAL REFLUX DISEASE [None]
  - LARYNGITIS [None]
  - PHARYNGITIS [None]
  - UPPER RESPIRATORY TRACT INFECTION [None]
  - URINARY TRACT INFECTION [None]
